FAERS Safety Report 10043898 (Version 2)
Quarter: 2014Q2

REPORT INFORMATION
  Report Type: Report from Study
  Country: US (occurrence: US)
  Receive Date: 20140328
  Receipt Date: 20140425
  Transmission Date: 20141212
  Serious: Yes (Hospitalization)
  Sender: FDA-Public Use
  Company Number: US-PURDUE-USA-2014-0112445

PATIENT
  Age: 56 Year
  Sex: Male

DRUGS (3)
  1. OXY CR TAB [Suspect]
     Indication: OSTEOARTHRITIS
     Dosage: UNK
     Route: 048
     Dates: start: 2012
  2. OXY CR TAB [Suspect]
     Indication: INTERVERTEBRAL DISC DEGENERATION
     Dosage: 120 MG, Q12H
     Route: 048
     Dates: start: 20140213
  3. ASPIRIN [Suspect]
     Indication: HEADACHE
     Route: 048

REACTIONS (5)
  - Gastric ulcer haemorrhage [Unknown]
  - Asthenia [Unknown]
  - Dizziness [Unknown]
  - Diarrhoea [Unknown]
  - Headache [Unknown]
